FAERS Safety Report 5787982-0 (Version None)
Quarter: 2008Q2

REPORT INFORMATION
  Report Type: 
  Country: None (occurrence: None)
  Receive Date: 20080625
  Receipt Date: 20080620
  Transmission Date: 20081010
  Serious: Yes (Death, Other)
  Sender: FDA-Public Use
  Company Number: UA-BRISTOL-MYERS SQUIBB COMPANY-14206585

PATIENT
  Age: 30 Year
  Sex: Female

DRUGS (1)
  1. SPRYCEL [Suspect]
     Indication: CHRONIC MYELOID LEUKAEMIA
     Dosage: INTER:14JAN-RESTAST29JAN140MG;8FEB;70MG 9-28FEBINRPT 29FEB-13MAR70MG 14MAR-21APR100MG 22APR-5MAY08
     Route: 048
     Dates: start: 20071224

REACTIONS (3)
  - CONSTIPATION [None]
  - GASTRIC HAEMORRHAGE [None]
  - HAEMATOTOXICITY [None]
